FAERS Safety Report 4883084-6 (Version None)
Quarter: 2006Q1

REPORT INFORMATION
  Report Type: 
  Country: None (occurrence: None)
  Receive Date: 20060113
  Receipt Date: 20051231
  Transmission Date: 20060701
  Serious: Yes (Hospitalization)
  Sender: FDA-Public Use
  Company Number: AT200601000051

PATIENT
  Age: 33 Year
  Sex: Female

DRUGS (1)
  1. XIGRIS [Suspect]
     Indication: SEPSIS
     Dosage: UNK, INTRAVENOUS
     Route: 042
     Dates: start: 20051228, end: 20060101

REACTIONS (1)
  - THROMBOCYTOPENIA [None]
